FAERS Safety Report 14394633 (Version 1)
Quarter: 2018Q1

REPORT INFORMATION
  Report Type: Spontaneous
  Country: JP (occurrence: JP)
  Receive Date: 20180116
  Receipt Date: 20180116
  Transmission Date: 20180509
  Serious: Yes (Death, Other)
  Sender: FDA-Public Use
  Company Number: JP-PFIZER INC-2017495883

PATIENT
  Age: 71 Year
  Sex: Male
  Weight: 48 kg

DRUGS (4)
  1. PACLITAXEL 100MG/16.7ML HOSPIRA [Suspect]
     Active Substance: PACLITAXEL
     Indication: GASTRIC CANCER
     Dosage: 95 MG, 1X/DAY
     Route: 042
     Dates: start: 20160601, end: 20160608
  2. PACLITAXEL 100MG/16.7ML HOSPIRA [Suspect]
     Active Substance: PACLITAXEL
     Dosage: 80 MG, 1X/DAY
     Route: 042
     Dates: start: 20160629, end: 20160817
  3. CYRAMZA [Concomitant]
     Active Substance: RAMUCIRUMAB
     Dosage: UNK
  4. PACLITAXEL 100MG/16.7ML HOSPIRA [Suspect]
     Active Substance: PACLITAXEL
     Dosage: 80 MG, 1X/DAY
     Route: 042
     Dates: start: 20160906, end: 20161208

REACTIONS (8)
  - Pleural effusion [Unknown]
  - Blood creatinine increased [Unknown]
  - Pneumatosis [Unknown]
  - Pneumonitis [Fatal]
  - Interstitial lung disease [Fatal]
  - Blood lactate dehydrogenase increased [Unknown]
  - Hypoxia [Unknown]
  - Blood urea increased [Unknown]

NARRATIVE: CASE EVENT DATE: 20161219
